FAERS Safety Report 10072019 (Version 3)
Quarter: 2016Q3

REPORT INFORMATION
  Report Type: Spontaneous
  Country: SE (occurrence: SE)
  Receive Date: 20140409
  Receipt Date: 20160825
  Transmission Date: 20161108
  Serious: Yes (Disabling)
  Sender: FDA-Public Use
  Company Number: SE-SEPTODONT-201401843

PATIENT
  Age: 48 Year
  Sex: Female

DRUGS (1)
  1. SEPTOCAINE [Suspect]
     Active Substance: ARTICAINE HYDROCHLORIDE\EPINEPHRINE BITARTRATE
     Indication: LOCAL ANAESTHESIA
     Route: 004
     Dates: start: 20130610, end: 20130610

REACTIONS (8)
  - Muscle spasms [Recovered/Resolved with Sequelae]
  - Neuralgia [Recovered/Resolved with Sequelae]
  - Dental discomfort [Recovered/Resolved with Sequelae]
  - Headache [Recovered/Resolved with Sequelae]
  - Myalgia [Recovered/Resolved with Sequelae]
  - Musculoskeletal stiffness [Recovered/Resolved with Sequelae]
  - Tremor [Recovered/Resolved with Sequelae]
  - Nausea [Recovered/Resolved with Sequelae]

NARRATIVE: CASE EVENT DATE: 20130610
